FAERS Safety Report 13121929 (Version 1)
Quarter: 2017Q1

REPORT INFORMATION
  Report Type: Spontaneous
  Country: ZA (occurrence: ZA)
  Receive Date: 20170117
  Receipt Date: 20170117
  Transmission Date: 20170428
  Serious: Yes (Hospitalization)
  Sender: FDA-Public Use
  Company Number: ZA-PFIZER INC-2017018941

PATIENT
  Age: 68 Year
  Sex: Male

DRUGS (6)
  1. ADCO DAPAMAX [Concomitant]
     Indication: HYPERTENSION
     Dosage: 2.5 MG, UNK
     Route: 048
     Dates: start: 20160718
  2. ONBREZ [Concomitant]
     Active Substance: INDACATEROL
     Indication: BRONCHITIS CHRONIC
     Dosage: 150 UG, UNK
     Route: 048
     Dates: start: 20160920
  3. ECOTRIN [Concomitant]
     Active Substance: ASPIRIN
     Indication: ANTICOAGULANT THERAPY
     Dosage: 81 MG, UNK
     Route: 048
     Dates: start: 20160718
  4. BILOCOR [Concomitant]
     Active Substance: BISOPROLOL FUMARATE
     Indication: CARDIAC DISORDER
     Dosage: 5 MG, UNK
     Route: 048
     Dates: start: 20160718
  5. ASPAVOR [Suspect]
     Active Substance: ATORVASTATIN
     Indication: BLOOD CHOLESTEROL INCREASED
     Dosage: 20 MG, UNK
     Route: 048
     Dates: start: 20160718
  6. VENTEZE [Concomitant]
     Indication: ASTHMA
     Dosage: 100 UG, UNK
     Route: 048
     Dates: start: 20160920

REACTIONS (1)
  - Hernia [Recovering/Resolving]
